FAERS Safety Report 10181777 (Version 1)
Quarter: 2014Q2

REPORT INFORMATION
  Report Type: Spontaneous
  Country: GB (occurrence: GB)
  Receive Date: 20140519
  Receipt Date: 20140519
  Transmission Date: 20141212
  Serious: Yes (Life-Threatening, Hospitalization, Other)
  Sender: FDA-Public Use
  Company Number: GB-MYLANLABS-2014S1010523

PATIENT
  Age: 72 Year
  Sex: Female

DRUGS (11)
  1. AZATHIOPRINE [Suspect]
     Route: 048
     Dates: start: 20140306, end: 20140416
  2. ADCAL D3 [Concomitant]
  3. ADIZEM-XL [Concomitant]
  4. ALENDRONIC ACID [Concomitant]
  5. DIXARIT [Concomitant]
  6. GLYCERYL TRINITRATE [Concomitant]
  7. OMEPRAZOLE [Concomitant]
  8. ONDANSETRON [Concomitant]
  9. QUININE SULFATE [Concomitant]
  10. SALBUTAMOL [Concomitant]
  11. SIMVASTATIN [Concomitant]

REACTIONS (3)
  - Pancreatitis acute [Recovering/Resolving]
  - Respiratory failure [Unknown]
  - Crohn^s disease [Unknown]
